FAERS Safety Report 4485938-1 (Version None)
Quarter: 2004Q4

REPORT INFORMATION
  Report Type: 
  Country: None (occurrence: None)
  Receive Date: 20041021
  Receipt Date: 20041006
  Transmission Date: 20050328
  Serious: Yes (Death, Hospitalization, Other)
  Sender: FDA-Public Use
  Company Number: A-US2003-03315

PATIENT
  Age: 62 Year
  Sex: Male

DRUGS (15)
  1. TRACLEER [Suspect]
     Indication: PULMONARY HYPERTENSION
     Dosage: SEE IMAGE
     Route: 048
     Dates: start: 20030724, end: 20030820
  2. TRACLEER [Suspect]
     Indication: PULMONARY HYPERTENSION
     Dosage: SEE IMAGE
     Route: 048
     Dates: start: 20030821, end: 20040729
  3. HUMULIN 70/30 [Concomitant]
  4. MULTIVITAMIN [Concomitant]
  5. ASPIRIN [Concomitant]
  6. AVANDIA [Concomitant]
  7. ALDACTONE [Concomitant]
  8. TROPOL [Concomitant]
  9. FLUTOX (CLOPERASTINE HYDROCHLORIDE) [Concomitant]
  10. COUMADIN [Concomitant]
  11. LASIX [Concomitant]
  12. NEXIUM [Concomitant]
  13. XOPENEX [Concomitant]
  14. ATROVENT [Concomitant]
  15. OXYGEN (OXYGEN) [Concomitant]

REACTIONS (11)
  - ATRIOVENTRICULAR BLOCK COMPLETE [None]
  - CONDITION AGGRAVATED [None]
  - COR PULMONALE [None]
  - DISEASE PROGRESSION [None]
  - DIZZINESS [None]
  - GALLBLADDER DISORDER [None]
  - HEPATIC CIRRHOSIS [None]
  - HEPATITIS CHRONIC ACTIVE [None]
  - PULMONARY HYPERTENSION [None]
  - RENAL FAILURE [None]
  - RESPIRATORY DISTRESS [None]
